FAERS Safety Report 8128209-4 (Version None)
Quarter: 2011Q4

REPORT INFORMATION
  Report Type: 
  Country: None (occurrence: None)
  Receive Date: 20111227
  Receipt Date: 20111018
  Transmission Date: 20120403
  Serious: No
  Sender: FDA-Public Use
  Company Number: PHEH2011US07311

PATIENT
  Age: 55 Year
  Sex: Female

DRUGS (1)
  1. GILENYA [Suspect]
     Indication: MULTIPLE SCLEROSIS
     Dosage: 0.5 MG, QOD, ORAL
     Route: 048
     Dates: start: 20110929, end: 20111017

REACTIONS (4)
  - INCORRECT DOSE ADMINISTERED [None]
  - TREMOR [None]
  - DIZZINESS [None]
  - ASTHENIA [None]
